FAERS Safety Report 18522244 (Version 1)
Quarter: 2020Q4

REPORT INFORMATION
  Report Type: Spontaneous
  Country: NL (occurrence: NO)
  Receive Date: 20201119
  Receipt Date: 20201119
  Transmission Date: 20210114
  Serious: Yes (Disabling)
  Sender: FDA-Public Use
  Company Number: NL-HORIZON-2020HZN01331

PATIENT
  Age: 22 Year
  Sex: Female

DRUGS (15)
  1. KETORAX [Suspect]
     Active Substance: KETOBEMIDONE HYDROCHLORIDE
     Indication: PAIN
     Dosage: 1 TABLET, EVERY 4-5 HOURS
     Route: 048
  2. TRAMADOL ACTAVIS [Suspect]
     Active Substance: TRAMADOL
     Indication: PAIN
     Dosage: ONE TABLET AS REQUIRED UP TO THREE TIMES A DAY
     Route: 048
  3. LAMISIL [Suspect]
     Active Substance: TERBINAFINE HYDROCHLORIDE
     Indication: FUNGAL INFECTION
     Dosage: APPLY IN A THIN LAYER TWICE DAILY FOR 2-3 WEEKS
     Route: 003
  4. PROTOPIC [Suspect]
     Active Substance: TACROLIMUS
     Indication: ECZEMA
     Dosage: 1 DOSAGE FORM , APPLY IN A THIN LAYER, EVERY 12 HOURS
     Route: 061
  5. HIPREX [Suspect]
     Active Substance: METHENAMINE HIPPURATE
     Indication: PROPHYLAXIS URINARY TRACT INFECTION
     Route: 048
  6. VOLTAREN [Suspect]
     Active Substance: DICLOFENAC SODIUM
     Indication: PAIN
     Route: 048
  7. LACTULOSE ORIFARM [Suspect]
     Active Substance: LACTULOSE
     Route: 048
  8. FUCIDIN [Suspect]
     Active Substance: FUSIDATE SODIUM
     Dosage: 1 DF EVERY 12 HOURS OR APPLY 2-3 TIMES DAILY
     Route: 003
  9. TRIMETHOPRIM. [Suspect]
     Active Substance: TRIMETHOPRIM
     Indication: URINARY TRACT INFECTION
     Route: 048
  10. PINEX FORTE [Suspect]
     Active Substance: ACETAMINOPHEN\CODEINE PHOSPHATE
     Indication: PAIN
     Dosage: 1-2 TABLETS AGAINST HEAVY PAIN
     Route: 048
  11. PARACET [Suspect]
     Active Substance: ACETAMINOPHEN
     Indication: PAIN
     Dosage: ONE TABLET AS REQUIRED UP TO THREE TIMES A DAY
     Route: 048
  12. VIMOVO [Suspect]
     Active Substance: ESOMEPRAZOLE MAGNESIUM\NAPROXEN
     Indication: PAIN
     Route: 050
  13. LAXOBERAL [Suspect]
     Active Substance: SODIUM PICOSULFATE
     Dosage: 10.0DF UNKNOWN
     Route: 048
  14. SAROTEX [Suspect]
     Active Substance: AMITRIPTYLINE HYDROCHLORIDE
     Indication: PAIN
     Route: 048
  15. SELEXID (AMDINOCILLIN PIVOXIL HYDROCHLORIDE) [Suspect]
     Active Substance: PIVMECILLINAM HYDROCHLORIDE
     Indication: URINARY TRACT INFECTION
     Route: 048

REACTIONS (1)
  - Haematoma [Not Recovered/Not Resolved]
